FAERS Safety Report 7981196-1 (Version None)
Quarter: 2011Q4

REPORT INFORMATION
  Report Type: 
  Country: None (occurrence: None)
  Receive Date: 20111215
  Receipt Date: 20111205
  Transmission Date: 20120403
  Serious: Yes (Hospitalization)
  Sender: FDA-Public Use
  Company Number: US-BAYER-2011-027306

PATIENT
  Age: 25 Year
  Sex: Female
  Weight: 63 kg

DRUGS (16)
  1. AZITHROMYCIN [Concomitant]
  2. YASMIN [Suspect]
  3. DIFLUCAN [Concomitant]
     Indication: FUNGAL INFECTION
     Dosage: 200 MG, UNK
     Route: 048
     Dates: start: 20101201
  4. ROCEPHIN [Concomitant]
     Indication: BORRELIA INFECTION
  5. CLINDAMYCIN [Concomitant]
  6. YASMIN [Suspect]
     Indication: ACNE
     Dosage: UNK
     Dates: start: 20060401
  7. PLAQUENIL [Concomitant]
     Dosage: 100 MG, BID
     Dates: start: 20101201
  8. ASCORBIC ACID [Concomitant]
  9. ZOLOFT [Concomitant]
     Dosage: UNK
     Dates: start: 20100101
  10. NSAID'S [Concomitant]
  11. YASMIN [Suspect]
     Indication: ENDOMETRIOSIS
  12. IBUPROFEN (ADVIL) [Concomitant]
  13. FLAGYL [Concomitant]
     Indication: DIARRHOEA
     Dosage: 500 MG, BID
     Dates: start: 20101201
  14. TIGECYCLINE [Concomitant]
     Indication: BORRELIA INFECTION
  15. YASMIN [Suspect]
     Indication: PREMENSTRUAL SYNDROME
  16. PROBIOTICS [Concomitant]
     Indication: FUNGAL INFECTION
     Dosage: UNK
     Dates: start: 20101201

REACTIONS (8)
  - ANXIETY [None]
  - EMOTIONAL DISTRESS [None]
  - GALLBLADDER DISORDER [None]
  - PAIN [None]
  - ANHEDONIA [None]
  - GENERAL PHYSICAL HEALTH DETERIORATION [None]
  - INJURY [None]
  - MENTAL DISORDER [None]
